FAERS Safety Report 8313706-9 (Version None)
Quarter: 2012Q2

REPORT INFORMATION
  Report Type: 
  Country: None (occurrence: None)
  Receive Date: 20120426
  Receipt Date: 20120419
  Transmission Date: 20120825
  Serious: Yes (Hospitalization, Disabling, Other)
  Sender: FDA-Public Use
  Company Number: PHHY2012FR033700

PATIENT
  Sex: Male

DRUGS (4)
  1. PLAVIX [Concomitant]
     Indication: CEREBROVASCULAR ACCIDENT
     Dosage: 75 MG, DAILY
     Route: 048
     Dates: start: 20050101
  2. ALISKIREN [Suspect]
     Indication: DIABETIC NEPHROPATHY
     Dosage: 150 MG, DAILY
     Route: 048
     Dates: start: 20100626, end: 20120121
  3. MICARDIS [Concomitant]
     Indication: HYPERTENSION
     Dosage: 80 MG, DAILY
     Dates: start: 20100101
  4. EZETIMIBE [Concomitant]
     Indication: HYPERCHOLESTEROLAEMIA
     Dosage: 1 DF, DAILY
     Route: 048

REACTIONS (4)
  - HEMIPARESIS [None]
  - DYSARTHRIA [None]
  - RENAL FAILURE CHRONIC [None]
  - CEREBROVASCULAR ACCIDENT [None]
